FAERS Safety Report 6094194-2 (Version None)
Quarter: 2009Q1

REPORT INFORMATION
  Report Type: 
  Country: None (occurrence: None)
  Receive Date: 20090226
  Receipt Date: 20090223
  Transmission Date: 20090719
  Serious: Yes (Other)
  Sender: FDA-Public Use
  Company Number: DE-BRISTOL-MYERS SQUIBB COMPANY-14517726

PATIENT
  Sex: Male

DRUGS (1)
  1. VEPESID-K-50 [Suspect]
     Indication: TESTICULAR NEOPLASM

REACTIONS (3)
  - BONE MARROW FAILURE [None]
  - RENAL FAILURE [None]
  - THROMBOCYTOPENIA [None]
